FAERS Safety Report 7982266-4 (Version None)
Quarter: 2011Q4

REPORT INFORMATION
  Report Type: 
  Country: None (occurrence: None)
  Receive Date: 20111215
  Receipt Date: 20111215
  Transmission Date: 20120403
  Serious: Yes (Other)
  Sender: FDA-Public Use
  Company Number: None

PATIENT
  Age: 81 Year
  Sex: Male

DRUGS (1)
  1. AMIODARONE HCL [Suspect]
     Indication: MEDICATION ERROR
     Dosage: 400MG
     Route: 042
     Dates: start: 20110905, end: 20110911

REACTIONS (3)
  - HAEMOPTYSIS [None]
  - PULMONARY OEDEMA [None]
  - RESPIRATORY FAILURE [None]
